FAERS Safety Report 16343102 (Version 1)
Quarter: 2019Q2

REPORT INFORMATION
  Report Type: Spontaneous
  Country: US (occurrence: US)
  Receive Date: 20190417
  Receipt Date: 20190417
  Transmission Date: 20190711
  Serious: No
  Sender: FDA-Public Use
  Company Number: None

PATIENT
  Age: 56 Year
  Sex: Female

DRUGS (1)
  1. BENLYSTA [Suspect]
     Active Substance: BELIMUMAB
     Dates: start: 20190125

REACTIONS (7)
  - Fatigue [None]
  - Anxiety [None]
  - Mood swings [None]
  - Dizziness [None]
  - Chest discomfort [None]
  - Nausea [None]
  - Swelling [None]

NARRATIVE: CASE EVENT DATE: 20190403
